FAERS Safety Report 10029869 (Version 1)
Quarter: 2014Q1

REPORT INFORMATION
  Report Type: Spontaneous
  Country: US (occurrence: None)
  Receive Date: 20140319
  Receipt Date: 20140319
  Transmission Date: 20141002
  Serious: Yes (Hospitalization)
  Sender: FDA-Public Use
  Company Number: US-IGSA-GBI1482

PATIENT
  Age: 12 Month
  Sex: Male

DRUGS (2)
  1. ALPHANINE SD [Suspect]
     Indication: HAEMOPHILIA
     Route: 042
  2. FACTOR IX CONCENTRATE [Concomitant]

REACTIONS (4)
  - Anaphylactic reaction [None]
  - Factor IX inhibition [None]
  - Dermatitis allergic [None]
  - Developmental delay [None]
